FAERS Safety Report 23881158 (Version 1)
Quarter: 2024Q2

REPORT INFORMATION
  Report Type: Spontaneous
  Country: AU (occurrence: AU)
  Receive Date: 20240521
  Receipt Date: 20240521
  Transmission Date: 20240716
  Serious: Yes (Hospitalization)
  Sender: FDA-Public Use
  Company Number: AU-SUN PHARMACEUTICAL INDUSTRIES LTD-2024R1-446989

PATIENT
  Age: 51 Year
  Sex: Male

DRUGS (18)
  1. LENALIDOMIDE [Suspect]
     Active Substance: LENALIDOMIDE
     Indication: Plasma cell myeloma
     Dosage: 25 MILLIGRAM, DAILY
     Route: 048
     Dates: start: 20221123, end: 20221129
  2. LENALIDOMIDE [Suspect]
     Active Substance: LENALIDOMIDE
     Dosage: 25 MILLIGRAM, DAILY
     Route: 048
     Dates: start: 20230306, end: 20230306
  3. DEXAMETHASONE [Suspect]
     Active Substance: DEXAMETHASONE
     Indication: Plasma cell myeloma
     Dosage: 40 MILLIGRAM
     Route: 042
     Dates: start: 20221123, end: 20221123
  4. DEXAMETHASONE [Suspect]
     Active Substance: DEXAMETHASONE
     Dosage: 40 MILLIGRAM
     Route: 042
     Dates: start: 20230306, end: 20230306
  5. ISATUXIMAB [Suspect]
     Active Substance: ISATUXIMAB
     Indication: Plasma cell myeloma
     Dosage: 10 MILLIGRAM/KILOGRAM, WEEKLY
     Route: 042
     Dates: start: 20221123
  6. ISATUXIMAB [Suspect]
     Active Substance: ISATUXIMAB
     Dosage: 25 MILLIGRAM/KILOGRAM
     Route: 042
     Dates: start: 20221123
  7. ISATUXIMAB [Suspect]
     Active Substance: ISATUXIMAB
     Dosage: 50 MILLIGRAM/KILOGRAM
     Route: 042
     Dates: start: 20221123
  8. ISATUXIMAB [Suspect]
     Active Substance: ISATUXIMAB
     Dosage: 75 MILLIGRAM/KILOGRAM
     Route: 042
     Dates: start: 20221123
  9. ISATUXIMAB [Suspect]
     Active Substance: ISATUXIMAB
     Dosage: 100 MILLIGRAM/KILOGRAM
     Route: 042
     Dates: start: 20221123
  10. ISATUXIMAB [Suspect]
     Active Substance: ISATUXIMAB
     Dosage: 125 MILLIGRAM/KILOGRAM
     Route: 042
     Dates: start: 20221123
  11. ISATUXIMAB [Suspect]
     Active Substance: ISATUXIMAB
     Dosage: 150 MILLIGRAM/KILOGRAM, WEEKLY
     Route: 042
  12. ASPIRIN [Concomitant]
     Active Substance: ASPIRIN
     Indication: Prophylaxis
     Dosage: UNK
     Route: 048
     Dates: start: 20221123
  13. FLUTICASONE FUROATE [Concomitant]
     Active Substance: FLUTICASONE FUROATE
     Indication: Prophylaxis
     Route: 045
  14. FLUTICASONE FUROATE [Concomitant]
     Active Substance: FLUTICASONE FUROATE
     Indication: Rhinitis allergic
  15. FEXOFENADINE [Concomitant]
     Active Substance: FEXOFENADINE HYDROCHLORIDE
     Indication: Prophylaxis
     Route: 065
  16. FILGRASTIM [Concomitant]
     Active Substance: FILGRASTIM
     Indication: Prophylaxis
     Dosage: UNK, 12 HOUR
     Route: 058
     Dates: start: 20221219, end: 20230410
  17. OMEPRAZOLE [Concomitant]
     Active Substance: DONEPEZIL HYDROCHLORIDE\OMEPRAZOLE\OMEPRAZOLE MAGNESIUM
     Indication: Prophylaxis
     Dosage: UNK
     Route: 048
     Dates: start: 20221123
  18. VALACYCLOVIR HYDROCHLORIDE [Concomitant]
     Active Substance: VALACYCLOVIR HYDROCHLORIDE
     Indication: Prophylaxis
     Route: 065

REACTIONS (2)
  - Influenza [Recovered/Resolved]
  - Pyrexia [Recovered/Resolved]

NARRATIVE: CASE EVENT DATE: 20230314
